FAERS Safety Report 6625916-7 (Version None)
Quarter: 2010Q1

REPORT INFORMATION
  Report Type: 
  Country: None (occurrence: None)
  Receive Date: 20100310
  Receipt Date: 20100302
  Transmission Date: 20100710
  Serious: Yes (Other)
  Sender: FDA-Public Use
  Company Number: US-BAYER-200934719NA

PATIENT
  Age: 58 Year
  Sex: Female

DRUGS (7)
  1. AVELOX [Suspect]
     Indication: CHRONIC SINUSITIS
     Dosage: TOTAL DAILY DOSE: 400 MG
     Route: 048
     Dates: start: 20090917, end: 20090926
  2. ALLOPURINOL [Concomitant]
     Indication: DRUG USE FOR UNKNOWN INDICATION
     Route: 065
  3. UROCIT [Concomitant]
     Indication: DRUG USE FOR UNKNOWN INDICATION
     Route: 048
  4. ZIAC [Concomitant]
     Dosage: 10/ 6.25
     Route: 048
  5. ZOLOFT [Concomitant]
     Indication: DRUG USE FOR UNKNOWN INDICATION
     Route: 048
  6. IBUPROFEN [Concomitant]
     Indication: DRUG USE FOR UNKNOWN INDICATION
     Dosage: 60G/WT
     Route: 065
  7. AMBIEN CR [Concomitant]
     Indication: DRUG USE FOR UNKNOWN INDICATION
     Route: 048

REACTIONS (11)
  - CHRONIC SINUSITIS [None]
  - CONTUSION [None]
  - COUGH [None]
  - HAEMORRHAGIC DIATHESIS [None]
  - HYPERSENSITIVITY [None]
  - MOUTH HAEMORRHAGE [None]
  - NASAL CONGESTION [None]
  - PLATELET COUNT DECREASED [None]
  - RASH [None]
  - RHINORRHOEA [None]
  - SINUS HEADACHE [None]
